FAERS Safety Report 19735045 (Version 5)
Quarter: 2022Q2

REPORT INFORMATION
  Report Type: Spontaneous
  Country: JP (occurrence: JP)
  Receive Date: 20210823
  Receipt Date: 20220621
  Transmission Date: 20220721
  Serious: Yes (Other)
  Sender: FDA-Public Use
  Company Number: JP-AMGEN-JPNSP2021127292

PATIENT
  Age: 45 Year
  Sex: Male

DRUGS (3)
  1. BLINCYTO [Suspect]
     Active Substance: BLINATUMOMAB
     Indication: Non-Hodgkin^s lymphoma
     Dosage: 9 MICROGRAM, QD
     Route: 041
     Dates: start: 20210806, end: 20210814
  2. BLINCYTO [Suspect]
     Active Substance: BLINATUMOMAB
     Indication: B precursor type acute leukaemia
     Dosage: 28 MICROGRAM, QD
     Route: 041
     Dates: start: 20210813, end: 20210814
  3. BLINCYTO [Suspect]
     Active Substance: BLINATUMOMAB
     Dosage: 9 MICROGRAM, QD
     Route: 041
     Dates: start: 20210818, end: 20210903

REACTIONS (4)
  - Amnestic disorder [Recovered/Resolved]
  - Acute lymphocytic leukaemia recurrent [Unknown]
  - Feeling abnormal [Recovered/Resolved]
  - Speech disorder [Recovered/Resolved]

NARRATIVE: CASE EVENT DATE: 20210101
